FAERS Safety Report 21568488 (Version 2)
Quarter: 2022Q4

REPORT INFORMATION
  Report Type: Report from Study
  Country: US (occurrence: US)
  Receive Date: 20221108
  Receipt Date: 20221209
  Transmission Date: 20230113
  Serious: No
  Sender: FDA-Public Use
  Company Number: US-002147023-NVSC2022US250918

PATIENT
  Sex: Female
  Weight: 68.934 kg

DRUGS (3)
  1. MEKINIST [Suspect]
     Active Substance: TRAMETINIB DIMETHYL SULFOXIDE
     Indication: Ovarian cancer
     Dosage: UNK, TID
     Route: 065
  2. MEKINIST [Suspect]
     Active Substance: TRAMETINIB DIMETHYL SULFOXIDE
     Dosage: 2 MG, QD (1ST MONTH)
     Route: 048
     Dates: start: 20220903
  3. MEKINIST [Suspect]
     Active Substance: TRAMETINIB DIMETHYL SULFOXIDE
     Dosage: 1.5 MG, QD (2ND MONTH)
     Route: 048

REACTIONS (10)
  - Abdominal distension [Not Recovered/Not Resolved]
  - Feeling abnormal [Unknown]
  - Muscle spasms [Unknown]
  - Blister [Unknown]
  - Stomatitis [Unknown]
  - Abdominal pain upper [Unknown]
  - Decreased appetite [Unknown]
  - Fatigue [Unknown]
  - Constipation [Unknown]
  - Flatulence [Unknown]
